FAERS Safety Report 8053462-5 (Version None)
Quarter: 2012Q1

REPORT INFORMATION
  Report Type: 
  Country: None (occurrence: None)
  Receive Date: 20120118
  Receipt Date: 20120113
  Transmission Date: 20120608
  Serious: Yes (Other)
  Sender: FDA-Public Use
  Company Number: JP-GLAXOSMITHKLINE-B0775698A

PATIENT
  Sex: Female

DRUGS (2)
  1. ZOLOFT [Concomitant]
     Route: 048
  2. LAMICTAL [Suspect]
     Route: 048

REACTIONS (2)
  - METRORRHAGIA [None]
  - GALACTORRHOEA [None]
